FAERS Safety Report 9818924 (Version 1)
Quarter: 2014Q1

REPORT INFORMATION
  Report Type: Spontaneous
  Country: US (occurrence: US)
  Receive Date: 20140115
  Receipt Date: 20140115
  Transmission Date: 20141002
  Serious: Yes (Other)
  Sender: FDA-Public Use
  Company Number: US-PFIZER INC-2014009221

PATIENT
  Age: 54 Year
  Sex: Female
  Weight: 74.38 kg

DRUGS (8)
  1. NORVASC [Suspect]
     Indication: HYPERTENSION
     Dosage: 10 MG, 1X/DAY
  2. PREMPRO [Suspect]
     Indication: HOT FLUSH
     Dosage: ONCE DAILY
  3. PREMPRO [Suspect]
     Indication: MENOPAUSE
  4. ATENOLOL [Concomitant]
     Indication: HYPERTENSION
     Dosage: 100 MG, 1X/DAY
  5. LISINOPRIL [Concomitant]
     Indication: HYPERTENSION
     Dosage: 40 MG, 1X/DAY
  6. TRAZODONE [Concomitant]
     Indication: SLEEP APNOEA SYNDROME
     Dosage: 100 MG, 1X/DAY
  7. TRAZODONE [Concomitant]
     Indication: HOT FLUSH
  8. TRAZODONE [Concomitant]
     Indication: SLEEP DISORDER

REACTIONS (3)
  - Foot deformity [Recovered/Resolved]
  - Bone swelling [Recovered/Resolved]
  - Hypoaesthesia [Recovered/Resolved]
